FAERS Safety Report 6439786-3 (Version None)
Quarter: 2009Q4

REPORT INFORMATION
  Report Type: 
  Country: None (occurrence: None)
  Receive Date: 20091113
  Receipt Date: 20091106
  Transmission Date: 20100525
  Serious: Yes (Hospitalization)
  Sender: FDA-Public Use
  Company Number: US-MERCK-0911USA01696

PATIENT
  Age: 20 Year
  Sex: Male
  Weight: 78 kg

DRUGS (6)
  1. SINGULAIR [Suspect]
     Route: 048
  2. ZICAM COLD REMEDY RAPID MELTS [Suspect]
     Indication: NASOPHARYNGITIS
     Route: 065
     Dates: start: 20091020, end: 20091020
  3. SEREVENT [Concomitant]
     Route: 065
  4. ASMANEX TWISTHALER [Concomitant]
     Route: 065
  5. CLARINEX [Concomitant]
     Route: 065
  6. ALBUTEROL [Concomitant]
     Route: 065

REACTIONS (7)
  - BACK PAIN [None]
  - HEADACHE [None]
  - INCOHERENT [None]
  - MUSCLE SPASMS [None]
  - MUSCULOSKELETAL PAIN [None]
  - NECK PAIN [None]
  - PYREXIA [None]
